FAERS Safety Report 6669031-5 (Version None)
Quarter: 2010Q2

REPORT INFORMATION
  Report Type: 
  Country: None (occurrence: None)
  Receive Date: 20100406
  Receipt Date: 20100331
  Transmission Date: 20101027
  Serious: Yes (Other)
  Sender: FDA-Public Use
  Company Number: US-BAYER-201013756BCC

PATIENT
  Age: 85 Year
  Sex: Female
  Weight: 95 kg

DRUGS (3)
  1. ASPIRIN [Suspect]
     Indication: DRUG USE FOR UNKNOWN INDICATION
     Dosage: UNIT DOSE: 81 MG
     Route: 048
     Dates: start: 20080101, end: 20090101
  2. ASPIRIN [Suspect]
     Dosage: TOTAL DAILY DOSE: 81 MG  UNIT DOSE: 81 MG
     Route: 048
     Dates: start: 20090101
  3. COZAAR [Concomitant]
     Route: 065

REACTIONS (2)
  - DEAFNESS [None]
  - TINNITUS [None]
